FAERS Safety Report 4427947-4 (Version None)
Quarter: 2004Q3

REPORT INFORMATION
  Report Type: 
  Country: None (occurrence: None)
  Receive Date: 20040813
  Receipt Date: 20040728
  Transmission Date: 20050211
  Serious: Yes (Other)
  Sender: FDA-Public Use
  Company Number: FROV000132

PATIENT
  Age: 43 Year
  Sex: Female

DRUGS (6)
  1. FROVA [Suspect]
     Indication: MIGRAINE
     Dosage: 2.5 MG PRN ORAL
     Route: 048
     Dates: start: 20030925
  2. PAXIL [Concomitant]
  3. BUSPAR [Concomitant]
  4. CONCERTA [Concomitant]
  5. FEVERFEW (HERBAL EXTRACTS NOS) [Concomitant]
  6. FIORICET (CAFFEINE) [Concomitant]

REACTIONS (13)
  - ABASIA [None]
  - ARTHRALGIA [None]
  - BLOOD PRESSURE INCREASED [None]
  - DYSPHAGIA [None]
  - DYSPNOEA [None]
  - ERYTHEMA [None]
  - MUSCLE CRAMP [None]
  - MUSCLE SPASMS [None]
  - MUSCULAR WEAKNESS [None]
  - MUSCULOSKELETAL STIFFNESS [None]
  - MYALGIA [None]
  - PARAESTHESIA [None]
  - SPEECH DISORDER [None]
